FAERS Safety Report 5058374-7 (Version None)
Quarter: 2006Q3

REPORT INFORMATION
  Report Type: 
  Country: None (occurrence: None)
  Receive Date: 20060721
  Receipt Date: 20060711
  Transmission Date: 20061208
  Serious: Yes (Other)
  Sender: FDA-Public Use
  Company Number: CA-ABBOTT-06P-028-0337957-00

PATIENT
  Sex: Female

DRUGS (1)
  1. BIAXIN [Suspect]
     Indication: LUNG INFECTION
     Route: 048
     Dates: start: 20060417, end: 20060418

REACTIONS (8)
  - ABASIA [None]
  - ABDOMINAL PAIN UPPER [None]
  - BACK PAIN [None]
  - COUGH [None]
  - DYSPNOEA [None]
  - HAEMATEMESIS [None]
  - ORAL INTAKE REDUCED [None]
  - WEIGHT DECREASED [None]
